FAERS Safety Report 9320897 (Version 2)
Quarter: 2013Q2

REPORT INFORMATION
  Report Type: Spontaneous
  Country: GB (occurrence: None)
  Receive Date: 20130528
  Receipt Date: 20130531
  Transmission Date: 20140414
  Serious: Yes (Other)
  Sender: FDA-Public Use
  Company Number: AUR-APL-2013-04220

PATIENT
  Age: 64 Year
  Sex: Female

DRUGS (5)
  1. METFORMIN (METFORMIN) [Suspect]
     Indication: TYPE 2 DIABETES MELLITUS
     Dosage: 1000 MG (500 MG, 2 IN 1 D), ORAL
     Route: 048
     Dates: start: 20060116
  2. GLICLAZIDE (GLICLAZIDE) [Concomitant]
  3. MINOCYCLINE (MINOCYCLINE) [Concomitant]
  4. RAMIPRIL (RAMIPRIL) [Concomitant]
  5. ROSUVASTATIN (ROSUVASTATIN) [Concomitant]

REACTIONS (3)
  - Blood glucose increased [None]
  - Drug ineffective [None]
  - Distractibility [None]
